FAERS Safety Report 19061935 (Version 3)
Quarter: 2021Q3

REPORT INFORMATION
  Report Type: Report from Study
  Country: FR (occurrence: FR)
  Receive Date: 20210326
  Receipt Date: 20210910
  Transmission Date: 20211014
  Serious: Yes (Hospitalization)
  Sender: FDA-Public Use
  Company Number: NVSC2021FR067470

PATIENT
  Age: 48 Year
  Sex: Female
  Weight: 108 kg

DRUGS (8)
  1. VANCOMYCINE [Concomitant]
     Active Substance: VANCOMYCIN
     Indication: PRODUCT USED FOR UNKNOWN INDICATION
     Dosage: 3500 MG, QD
     Route: 065
     Dates: start: 20210216, end: 20210302
  2. TARDYFERON [Concomitant]
     Active Substance: FERROUS SULFATE
     Indication: PRODUCT USED FOR UNKNOWN INDICATION
     Dosage: 80 MG, QD
     Route: 065
     Dates: start: 20210211
  3. DAUNORUBICIN [Suspect]
     Active Substance: DAUNORUBICIN
     Indication: ACUTE MYELOID LEUKAEMIA
     Dosage: 180 MG (D2, D3)
     Route: 041
     Dates: start: 20210212
  4. CYTARABINE. [Suspect]
     Active Substance: CYTARABINE
     Indication: ACUTE MYELOID LEUKAEMIA
     Dosage: 400 MG (D2, D3 AND D4)
     Route: 041
     Dates: start: 20210212
  5. MAG 2 [Concomitant]
     Active Substance: MAGNESIUM
     Indication: PRODUCT USED FOR UNKNOWN INDICATION
     Dosage: QD
     Route: 065
     Dates: start: 20210211
  6. NEOPAM [Concomitant]
     Indication: PRODUCT USED FOR UNKNOWN INDICATION
     Dosage: 100 MG, BID (20MG/2ML)
     Route: 065
     Dates: start: 20210218, end: 20210302
  7. CGP 41251 / PKC 412A [Suspect]
     Active Substance: MIDOSTAURIN
     Dosage: 50 MG, BID (D8 TO D21)
     Route: 048
  8. CGP 41251 / PKC 412A [Suspect]
     Active Substance: MIDOSTAURIN
     Indication: ACUTE MYELOID LEUKAEMIA
     Dosage: 100 MG /DAY PER (50 MG MORNING AND 50 MG EVENING) QD
     Route: 048
     Dates: start: 20210219, end: 20210228

REACTIONS (1)
  - Jaundice [Recovered/Resolved]

NARRATIVE: CASE EVENT DATE: 20210223
